FAERS Safety Report 5869381-6 (Version None)
Quarter: 2008Q3

REPORT INFORMATION
  Report Type: 
  Country: None (occurrence: None)
  Receive Date: 20080903
  Receipt Date: 20071128
  Transmission Date: 20090109
  Serious: No
  Sender: FDA-Public Use
  Company Number: US-BOEHRINGER INGELHEIM GMBH, GERMANY-2007-BP-25233BP

PATIENT

DRUGS (1)
  1. COMBIVENT [Suspect]
     Route: 055

REACTIONS (1)
  - HEART RATE INCREASED [None]
